FAERS Safety Report 9384156 (Version 2)
Quarter: 2013Q3

REPORT INFORMATION
  Report Type: Spontaneous
  Country: BR (occurrence: BR)
  Receive Date: 20130705
  Receipt Date: 20130820
  Transmission Date: 20140515
  Serious: Yes (Death, Other)
  Sender: FDA-Public Use
  Company Number: BR-ROCHE-1242436

PATIENT
  Age: 60 Year
  Sex: Female

DRUGS (9)
  1. AVASTIN [Suspect]
     Indication: BREAST CANCER
     Dosage: FIRST CYCLE
     Route: 065
     Dates: start: 201109
  2. AVASTIN [Suspect]
     Dosage: SECOND CYCLE
     Route: 065
     Dates: start: 201110
  3. AVASTIN [Suspect]
     Dosage: THIRD CYCLE
     Route: 065
     Dates: start: 201109
  4. AVASTIN [Suspect]
     Dosage: FIFTH CYCLE, THERAPY SUSPENDED ON 15TH DAY
     Route: 065
     Dates: start: 201202, end: 201202
  5. XELODA [Suspect]
     Indication: PRODUCT USED FOR UNKNOWN INDICATION
     Route: 065
     Dates: start: 201211
  6. PACLITAXEL [Concomitant]
     Route: 065
     Dates: end: 201109
  7. ZOLEDRONIC ACID [Concomitant]
     Route: 065
     Dates: start: 201109
  8. DOCETAXEL [Concomitant]
     Route: 065
     Dates: start: 201109
  9. DOCETAXEL [Concomitant]
     Route: 065
     Dates: start: 201207, end: 201210

REACTIONS (15)
  - Intracranial pressure increased [Fatal]
  - Metastases to meninges [Fatal]
  - Carbohydrate antigen 15-3 increased [Unknown]
  - Haemoglobin increased [Unknown]
  - Hypertension [Unknown]
  - Hypertensive crisis [Unknown]
  - Epistaxis [Unknown]
  - Neuropathy peripheral [Unknown]
  - Breast cancer [Unknown]
  - Metastases to bone [Unknown]
  - Metastases to abdominal cavity [Unknown]
  - Strabismus [Unknown]
  - Metastases to central nervous system [Unknown]
  - Metastases to meninges [Unknown]
  - Neurological decompensation [Unknown]
